FAERS Safety Report 9749964 (Version 1)
Quarter: 2013Q4

REPORT INFORMATION
  Report Type: Report from Study
  Country: US (occurrence: US)
  Receive Date: 20131212
  Receipt Date: 20131212
  Transmission Date: 20140711
  Serious: Yes (Other)
  Sender: FDA-Public Use
  Company Number: US-PURDUE-USA-2013-0109455

PATIENT
  Age: 60 Year
  Sex: Male

DRUGS (3)
  1. OXY CR TAB [Suspect]
     Indication: MUSCULOSKELETAL PAIN
     Dosage: UNK
     Route: 048
     Dates: start: 2010
  2. OXY CR TAB [Suspect]
     Indication: ARTHRALGIA
     Dosage: 160 MG, BID
     Route: 048
     Dates: start: 20130409
  3. OXY CR TAB [Suspect]
     Indication: NECK PAIN

REACTIONS (3)
  - Leukaemia [Unknown]
  - White blood cell count decreased [Unknown]
  - Haemoglobin increased [Unknown]
